FAERS Safety Report 5422408-8 (Version None)
Quarter: 2007Q3

REPORT INFORMATION
  Report Type: 
  Country: None (occurrence: None)
  Receive Date: 20070822
  Receipt Date: 20070809
  Transmission Date: 20080115
  Serious: Yes (Hospitalization)
  Sender: FDA-Public Use
  Company Number: B0471152A

PATIENT
  Age: 59 Year
  Sex: Female

DRUGS (6)
  1. ZYBAN [Suspect]
     Route: 065
     Dates: start: 20070327
  2. SPIRIVA [Concomitant]
     Route: 055
  3. BUDESONIDE EASYHALER [Concomitant]
     Route: 055
  4. ALVEDON [Concomitant]
     Route: 065
  5. KLEXANE [Concomitant]
     Route: 065
  6. DIKLOFENAK [Concomitant]
     Route: 065

REACTIONS (2)
  - ESCHERICHIA URINARY TRACT INFECTION [None]
  - URINARY RETENTION [None]
